FAERS Safety Report 9299010 (Version 4)
Quarter: 2013Q2

REPORT INFORMATION
  Report Type: Spontaneous
  Country: GB (occurrence: None)
  Receive Date: 20130515
  Receipt Date: 20130611
  Transmission Date: 20140414
  Serious: Yes (Hospitalization)
  Sender: FDA-Public Use
  Company Number: AUR-APL-2013-03777

PATIENT
  Age: 61 Year
  Sex: Female

DRUGS (1)
  1. CITALOPRAM [Suspect]
     Indication: DEPRESSION
     Dosage: 40 MG (20 MG, 2 IN 1 D), TABLET, ORAL
     Route: 048
     Dates: start: 2011

REACTIONS (4)
  - Overdose [None]
  - Homicide [None]
  - Withdrawal syndrome [None]
  - Drug dose omission [None]
